FAERS Safety Report 5763598-7 (Version None)
Quarter: 2008Q2

REPORT INFORMATION
  Report Type: 
  Country: None (occurrence: None)
  Receive Date: 20080610
  Receipt Date: 20080530
  Transmission Date: 20081010
  Serious: Yes (Hospitalization)
  Sender: FDA-Public Use
  Company Number: PHHY2008FR09644

PATIENT
  Sex: Female

DRUGS (2)
  1. VALSARTAN [Suspect]
     Indication: HYPERTENSION
     Dosage: 80 MG, QD
  2. PREVISCAN [Suspect]
     Dosage: 15 MG, QD

REACTIONS (4)
  - BRONCHITIS [None]
  - ERYSIPELAS [None]
  - HAEMARTHROSIS [None]
  - LUNG DISORDER [None]
